FAERS Safety Report 9443020 (Version 2)
Quarter: 2013Q3

REPORT INFORMATION
  Report Type: Report from Study
  Country: US (occurrence: US)
  Receive Date: 20130806
  Receipt Date: 20130814
  Transmission Date: 20140515
  Serious: Yes (Hospitalization)
  Sender: FDA-Public Use
  Company Number: US-ACTELION-A-NJ2013-83180

PATIENT
  Age: 43 Year
  Sex: Female

DRUGS (3)
  1. VENTAVIS [Suspect]
     Indication: PULMONARY ARTERIAL HYPERTENSION
     Dosage: UNK
     Route: 055
  2. TRACLEER [Suspect]
     Indication: PULMONARY ARTERIAL HYPERTENSION
     Dosage: UNK
     Route: 048
  3. ADCIRCA [Concomitant]

REACTIONS (7)
  - Dehydration [Unknown]
  - Blood potassium decreased [Unknown]
  - Chest pain [Unknown]
  - Dyspnoea [Unknown]
  - Oedema [Unknown]
  - Weight increased [Unknown]
  - Headache [Unknown]
